FAERS Safety Report 13703414 (Version 1)
Quarter: 2017Q2

REPORT INFORMATION
  Report Type: Spontaneous
  Country: DK (occurrence: DK)
  Receive Date: 20170629
  Receipt Date: 20170629
  Transmission Date: 20170830
  Serious: Yes (Hospitalization)
  Sender: FDA-Public Use
  Company Number: DK-ABBVIE-17P-044-2024616-00

PATIENT
  Age: 59 Year
  Sex: Female

DRUGS (5)
  1. LITHIUM. [Suspect]
     Active Substance: LITHIUM
     Route: 065
     Dates: start: 2000, end: 200512
  2. LITHIUM. [Suspect]
     Active Substance: LITHIUM
     Indication: BIPOLAR DISORDER
     Route: 065
     Dates: end: 1997
  3. LITHIUM. [Suspect]
     Active Substance: LITHIUM
     Route: 048
     Dates: start: 201012
  4. VALPROATE SALT NOT SPECIFIED [Suspect]
     Active Substance: VALPROATE SODIUM
     Indication: BIPOLAR DISORDER
     Route: 065
  5. LITHIUM. [Suspect]
     Active Substance: LITHIUM
     Route: 065

REACTIONS (7)
  - End stage renal disease [Unknown]
  - Polyuria [Unknown]
  - Proteinuria [Unknown]
  - Blood creatinine increased [Unknown]
  - Drug ineffective [Unknown]
  - Hypertension [Unknown]
  - Off label use [Unknown]

NARRATIVE: CASE EVENT DATE: 1994
